FAERS Safety Report 4326367-0 (Version None)
Quarter: 2004Q1

REPORT INFORMATION
  Report Type: 
  Country: None (occurrence: None)
  Receive Date: 20040323
  Receipt Date: 20040309
  Transmission Date: 20041129
  Serious: Yes (Other)
  Sender: FDA-Public Use
  Company Number: 138147USA

PATIENT
  Age: 50 Year
  Sex: Male

DRUGS (12)
  1. COPAXONE [Suspect]
     Indication: MULTIPLE SCLEROSIS
     Dosage: 20 MILLIGRAM QD SUBCUTANEOUS
     Route: 058
     Dates: start: 20010412, end: 20030901
  2. HYDROCHLOROTHIAZIDE [Concomitant]
  3. KLONOPIN [Concomitant]
  4. LIDODERM PATCH [Concomitant]
  5. LIORESAL [Concomitant]
  6. NEURONTIN [Concomitant]
  7. PRINIVIL [Concomitant]
  8. VITAMIN CAP [Concomitant]
  9. VIAGRA [Concomitant]
  10. ZOLOFT [Concomitant]
  11. ZYRTEC [Concomitant]
  12. IBUPROFEN [Concomitant]

REACTIONS (8)
  - CELLULITIS [None]
  - CHEST DISCOMFORT [None]
  - DYSPNOEA [None]
  - ERYTHEMA [None]
  - INJECTION SITE NECROSIS [None]
  - INJECTION SITE REACTION [None]
  - INJECTION SITE THROMBOSIS [None]
  - SCAR [None]
